FAERS Safety Report 20411156 (Version 1)
Quarter: 2022Q1

REPORT INFORMATION
  Report Type: Spontaneous
  Country: US (occurrence: None)
  Receive Date: 20220201
  Receipt Date: 20220201
  Transmission Date: 20220423
  Serious: No
  Sender: FDA-Public Use
  Company Number: None

PATIENT
  Sex: Female
  Weight: 62.1 kg

DRUGS (2)
  1. CYTARABINE [Suspect]
     Active Substance: CYTARABINE
  2. ERWINIA ASPARAGINASE [Concomitant]

REACTIONS (10)
  - Campylobacter gastroenteritis [None]
  - Abdominal pain [None]
  - Pyrexia [None]
  - Abdominal tenderness [None]
  - Neutropenia [None]
  - Chromaturia [None]
  - Appendicitis [None]
  - Mucosal inflammation [None]
  - Enteritis [None]
  - Pseudomonas test positive [None]

NARRATIVE: CASE EVENT DATE: 20220112
